FAERS Safety Report 8103126-4 (Version None)
Quarter: 2012Q1

REPORT INFORMATION
  Report Type: 
  Country: None (occurrence: None)
  Receive Date: 20120201
  Receipt Date: 20120119
  Transmission Date: 20120608
  Serious: Yes (Death, Hospitalization, Other)
  Sender: FDA-Public Use
  Company Number: DE-ACTELION-A-CH2011-56991

PATIENT
  Sex: Female
  Weight: 75 kg

DRUGS (12)
  1. TRACLEER [Suspect]
     Indication: SKIN ULCER
     Dosage: 125 MG, BID
     Route: 048
     Dates: start: 20110114, end: 20110523
  2. PREDNISOLONE [Concomitant]
  3. TRACLEER [Suspect]
     Dosage: 62.5 MG, BID
     Route: 048
     Dates: start: 20101214, end: 20110113
  4. ASPIRIN [Concomitant]
  5. DOMPERIDON [Concomitant]
  6. RAMIPRIL [Concomitant]
  7. METHOTREXATE SODIUM [Concomitant]
  8. OMEPRAZOLE [Concomitant]
  9. CALCICARE [Concomitant]
  10. LEVOTHYROXINE SODIUM [Concomitant]
  11. ALDACTONE [Concomitant]
  12. HALOPERIDOL [Concomitant]

REACTIONS (12)
  - PULMONARY EMBOLISM [None]
  - DEHYDRATION [None]
  - WEIGHT DECREASED [None]
  - SPINAL FRACTURE [None]
  - PELVIC FRACTURE [None]
  - PAIN [None]
  - CIRCULATORY COLLAPSE [None]
  - RESUSCITATION [None]
  - SYNCOPE [None]
  - MYOCARDIAL INFARCTION [None]
  - ACCIDENT [None]
  - GASTRITIS EROSIVE [None]
